FAERS Safety Report 25352007 (Version 1)
Quarter: 2025Q2

REPORT INFORMATION
  Report Type: Report from Study
  Country: US (occurrence: US)
  Receive Date: 20250523
  Receipt Date: 20250523
  Transmission Date: 20250717
  Serious: No
  Sender: AVERITAS
  Company Number: US-GRUNENTHAL-2025-107235

PATIENT
  Age: 62 Year
  Sex: Male

DRUGS (1)
  1. QUTENZA [Suspect]
     Active Substance: CAPSAICIN
     Indication: Diabetic neuropathy
     Route: 003
     Dates: start: 20250417, end: 20250417

REACTIONS (3)
  - Feeling abnormal [Unknown]
  - Blood glucose decreased [Unknown]
  - Pain [Unknown]

NARRATIVE: CASE EVENT DATE: 20250514
